FAERS Safety Report 4954961-2 (Version None)
Quarter: 2006Q1

REPORT INFORMATION
  Report Type: 
  Country: None (occurrence: None)
  Receive Date: 20060322
  Receipt Date: 20060306
  Transmission Date: 20060701
  Serious: Yes (Hospitalization, Other)
  Sender: FDA-Public Use
  Company Number: 8015450

PATIENT
  Age: 33 Year
  Sex: Female

DRUGS (6)
  1. KEPPRA [Suspect]
     Indication: GRAND MAL CONVULSION
     Dosage: 500 MG /D
     Dates: start: 20050804
  2. PHENYTOIN [Concomitant]
  3. PRENATAL VITAMINS [Concomitant]
  4. CALCIUM GLUCONATE [Concomitant]
  5. IRON [Concomitant]
  6. FOLIC ACID [Concomitant]

REACTIONS (8)
  - CAESAREAN SECTION [None]
  - COMPLICATION OF PREGNANCY [None]
  - DRUG EXPOSURE DURING PREGNANCY [None]
  - FALL [None]
  - GRAND MAL CONVULSION [None]
  - LABOUR COMPLICATION [None]
  - LOWER LIMB FRACTURE [None]
  - TREATMENT NONCOMPLIANCE [None]
